FAERS Safety Report 6519406-X (Version None)
Quarter: 2009Q4

REPORT INFORMATION
  Report Type: 
  Country: None (occurrence: None)
  Receive Date: 20091224
  Receipt Date: 20091224
  Transmission Date: 20100525
  Serious: Yes (Hospitalization)
  Sender: FDA-Public Use
  Company Number: None

PATIENT
  Age: 82 Year
  Sex: Male
  Weight: 81.9 kg

DRUGS (2)
  1. CLONAZEPAM [Suspect]
     Indication: CONVULSION
     Dosage: 0.5 MG TID PO
     Route: 048
     Dates: start: 20091027, end: 20091213
  2. ACETAMINOPHEN AND HYDROCODONE BITARTRATE [Suspect]
     Indication: PAIN
     Dosage: 1 TAB PRN PO
     Route: 048
     Dates: start: 20091130, end: 20091213

REACTIONS (1)
  - MENTAL STATUS CHANGES [None]
